FAERS Safety Report 25668369 (Version 1)
Quarter: 2025Q3

REPORT INFORMATION
  Report Type: Report from Study
  Country: US (occurrence: US)
  Receive Date: 20250812
  Receipt Date: 20250812
  Transmission Date: 20251020
  Serious: Yes (Other)
  Sender: JOHNSON AND JOHNSON
  Company Number: US-JNJFOC-20250806286

PATIENT
  Age: 29 Year
  Sex: Female

DRUGS (2)
  1. SPRAVATO [Suspect]
     Active Substance: ESKETAMINE
     Indication: Depression
     Route: 045
     Dates: start: 20250805, end: 20250805
  2. SPRAVATO [Suspect]
     Active Substance: ESKETAMINE
     Route: 045
     Dates: start: 20250714, end: 20250729

REACTIONS (4)
  - Drug abuse [Recovered/Resolved]
  - Heart rate increased [Recovered/Resolved]
  - Crying [Recovered/Resolved]
  - Physical examination abnormal [Unknown]

NARRATIVE: CASE EVENT DATE: 20250805
